FAERS Safety Report 25107159 (Version 3)
Quarter: 2025Q2

REPORT INFORMATION
  Report Type: Report from Study
  Country: US (occurrence: US)
  Receive Date: 20250321
  Receipt Date: 20250423
  Transmission Date: 20250716
  Serious: Yes (Other)
  Sender: ABBVIE
  Company Number: US-ABBVIE-6188550

PATIENT
  Age: 67 Year
  Sex: Female
  Weight: 115.66 kg

DRUGS (1)
  1. CREON [Suspect]
     Active Substance: PANCRELIPASE AMYLASE\PANCRELIPASE LIPASE\PANCRELIPASE PROTEASE
     Indication: Pancreatic failure
     Route: 048
     Dates: start: 20241023

REACTIONS (8)
  - Exostosis [Recovering/Resolving]
  - Procedural pain [Recovering/Resolving]
  - Tendon rupture [Not Recovered/Not Resolved]
  - Food allergy [Recovering/Resolving]
  - Decreased appetite [Recovering/Resolving]
  - Cataract [Not Recovered/Not Resolved]
  - Back pain [Unknown]
  - Pain in extremity [Unknown]

NARRATIVE: CASE EVENT DATE: 20250301
